FAERS Safety Report 5583497-3 (Version None)
Quarter: 2008Q1

REPORT INFORMATION
  Report Type: 
  Country: None (occurrence: None)
  Receive Date: 20080107
  Receipt Date: 20071211
  Transmission Date: 20080703
  Serious: No
  Sender: FDA-Public Use
  Company Number: US-BOEHRINGER INGELHEIM PHARMACEUTICALS, INC.-2007-BP-26065BP

PATIENT
  Age: 67 Year
  Sex: Female

DRUGS (11)
  1. SPIRIVA [Suspect]
  2. ATROVENT [Concomitant]
  3. ADVAIR DISKUS 100/50 [Concomitant]
  4. ALBUTEROL [Concomitant]
  5. ACTONEL [Concomitant]
  6. ATIVAN [Concomitant]
  7. ZOCOR [Concomitant]
  8. VICODIN [Concomitant]
  9. SYNTHROID [Concomitant]
  10. QUINNINE [Concomitant]
  11. PLAVIX [Concomitant]

REACTIONS (1)
  - URINARY RETENTION [None]
